FAERS Safety Report 5786132-4 (Version None)
Quarter: 2008Q2

REPORT INFORMATION
  Report Type: 
  Country: None (occurrence: None)
  Receive Date: 20080624
  Receipt Date: 20080417
  Transmission Date: 20081010
  Serious: Yes (Death)
  Sender: FDA-Public Use
  Company Number: NL-ELI_LILLY_AND_COMPANY-NL200806004806

PATIENT
  Age: 81 Year
  Sex: Female

DRUGS (6)
  1. CYMBALTA [Suspect]
     Dosage: UNK, UNKNOWN
     Route: 065
  2. DIAZEPAM [Concomitant]
     Dosage: UNK, UNKNOWN
     Route: 065
  3. MORFIN [Concomitant]
     Dosage: UNK, UNKNOWN
     Route: 065
  4. COZAAR [Concomitant]
     Dosage: UNK, UNKNOWN
     Route: 065
  5. PREDNISOLONE [Concomitant]
     Dosage: UNK, UNKNOWN
     Route: 065
  6. MORFIN [Concomitant]
     Dosage: UNK, UNKNOWN
     Route: 065

REACTIONS (2)
  - LEUKAEMIA [None]
  - MALIGNANT NEOPLASM PROGRESSION [None]
